FAERS Safety Report 21776396 (Version 1)
Quarter: 2022Q4

REPORT INFORMATION
  Report Type: Report from Study
  Country: US (occurrence: US)
  Receive Date: 20221226
  Receipt Date: 20221226
  Transmission Date: 20230113
  Serious: No
  Sender: FDA-Public Use
  Company Number: US-ABBVIE-4248646

PATIENT
  Sex: Female

DRUGS (2)
  1. VENCLEXTA [Suspect]
     Active Substance: VENETOCLAX
     Indication: Hypogammaglobulinaemia
     Dosage: TIME INTERVAL: 0.33333333 DAYS: TAKE 3 TABLETS BY MOUTH ONCE DAILY WITH FOOD AND A FULL GLASS OF ...
     Route: 048
     Dates: end: 202210
  2. ALLOPURINOL [Concomitant]
     Active Substance: ALLOPURINOL
     Indication: Product used for unknown indication
     Route: 065

REACTIONS (1)
  - Blood immunoglobulin G decreased [Unknown]
